FAERS Safety Report 16211306 (Version 4)
Quarter: 2021Q4

REPORT INFORMATION
  Report Type: Spontaneous
  Country: CA (occurrence: CA)
  Receive Date: 20190418
  Receipt Date: 20211030
  Transmission Date: 20220303
  Serious: Yes (Death, Other)
  Sender: FDA-Public Use
  Company Number: CA-AUROBINDO-AUR-APL-2019-020138

PATIENT
  Age: 33 Year
  Sex: Male

DRUGS (7)
  1. PAROXETINE [Suspect]
     Active Substance: PAROXETINE
     Indication: Panic attack
     Dosage: UNK
     Route: 048
  2. MOCLOBEMIDE [Suspect]
     Active Substance: MOCLOBEMIDE
     Indication: Product used for unknown indication
     Dosage: UNK
     Route: 048
  3. LORAZEPAM [Concomitant]
     Active Substance: LORAZEPAM
     Indication: Panic attack
     Dosage: UNK
     Route: 065
  4. LIDOCAINE [Concomitant]
     Active Substance: LIDOCAINE
     Indication: Product used for unknown indication
     Dosage: UNK
     Route: 061
  5. ALCOHOL [Concomitant]
     Active Substance: ALCOHOL
     Indication: Product used for unknown indication
     Dosage: UNK
     Route: 065
  6. CODEINE [Concomitant]
     Active Substance: CODEINE
     Indication: Product used for unknown indication
     Dosage: UNK
     Route: 065
  7. ACETAMINOPHEN [Concomitant]
     Active Substance: ACETAMINOPHEN
     Indication: Product used for unknown indication
     Dosage: UNK
     Route: 065

REACTIONS (5)
  - Cardiac arrest [Fatal]
  - Completed suicide [Fatal]
  - Intentional overdose [Fatal]
  - Serotonin syndrome [Fatal]
  - Toxicity to various agents [Fatal]
